FAERS Safety Report 8016517-7 (Version None)
Quarter: 2011Q4

REPORT INFORMATION
  Report Type: 
  Country: None (occurrence: None)
  Receive Date: 20111230
  Receipt Date: 20111229
  Transmission Date: 20120403
  Serious: Yes (Death)
  Sender: FDA-Public Use
  Company Number: US-ROCHE-1021515

PATIENT
  Sex: Male
  Weight: 92.389 kg

DRUGS (11)
  1. DOCUSATE SODIUM [Concomitant]
  2. LORAZEPAM [Concomitant]
  3. FISH OIL [Concomitant]
  4. IBUPROFEN [Concomitant]
  5. AVASTIN [Suspect]
     Indication: OESOPHAGEAL ADENOCARCINOMA
     Route: 042
     Dates: start: 20111209
  6. MULTI-VITAMIN [Concomitant]
  7. OXALIPLATIN [Suspect]
     Indication: OESOPHAGEAL ADENOCARCINOMA
     Route: 042
     Dates: start: 20111209
  8. HYDROCODONE BITARTRATE AND ACETAMINOPHEN [Concomitant]
     Dosage: DOSE 5 MG/500 MG
  9. PANTOPRAZOLE SODIUM [Concomitant]
  10. XELODA [Suspect]
     Indication: OESOPHAGEAL ADENOCARCINOMA
     Route: 048
     Dates: start: 20111209
  11. CALCIUM CARBONATE/VITAMIN D NOS [Concomitant]

REACTIONS (1)
  - CARDIAC ARREST [None]
